FAERS Safety Report 18946017 (Version 1)
Quarter: 2021Q1

REPORT INFORMATION
  Report Type: Spontaneous
  Country: US (occurrence: US)
  Receive Date: 20210226
  Receipt Date: 20210226
  Transmission Date: 20210420
  Serious: No
  Sender: FDA-Public Use
  Company Number: US-AMNEAL PHARMACEUTICALS-2020-AMRX-02763

PATIENT
  Age: 57 Year
  Sex: Male

DRUGS (1)
  1. METFORMIN HYDROCHLORIDE. [Suspect]
     Active Substance: METFORMIN HYDROCHLORIDE
     Indication: DIABETES MELLITUS
     Dosage: 750 MILLIGRAM, 2 /DAY
     Route: 048
     Dates: start: 2008, end: 202007

REACTIONS (3)
  - Illness [Not Recovered/Not Resolved]
  - Scab [Not Recovered/Not Resolved]
  - Pain [Not Recovered/Not Resolved]
